FAERS Safety Report 12618653 (Version 1)
Quarter: 2016Q3

REPORT INFORMATION
  Report Type: Spontaneous
  Country: US (occurrence: None)
  Receive Date: 20160802
  Receipt Date: 20160802
  Transmission Date: 20161109
  Serious: Yes (Hospitalization)
  Sender: FDA-Public Use
  Company Number: None

PATIENT
  Age: 18 Year
  Sex: Female
  Weight: 9.71 kg

DRUGS (3)
  1. MIREYAS CREAM C84732 [Suspect]
     Active Substance: COLLAGEN
     Indication: SKIN DISCOLOURATION
     Route: 061
  2. MIREYAS VEGA AVILEX [Concomitant]
  3. MERCURY [Suspect]
     Active Substance: MERCURY

REACTIONS (13)
  - Hypertension [None]
  - Environmental exposure [None]
  - Decreased appetite [None]
  - Product contamination physical [None]
  - Pyrexia [None]
  - Product tampering [None]
  - Constipation [None]
  - Irritability [None]
  - Gait disturbance [None]
  - Screaming [None]
  - Blood mercury abnormal [None]
  - Arthralgia [None]
  - Bone pain [None]

NARRATIVE: CASE EVENT DATE: 20160624
